FAERS Safety Report 6472486-2 (Version None)
Quarter: 2009Q4

REPORT INFORMATION
  Report Type: 
  Country: None (occurrence: None)
  Receive Date: 20091125
  Receipt Date: 20091120
  Transmission Date: 20100525
  Serious: Yes (Hospitalization)
  Sender: FDA-Public Use
  Company Number: SPV1-2009-02342

PATIENT
  Age: 76 Year
  Sex: Male
  Weight: 55 kg

DRUGS (2)
  1. ANAGRELIDE HCL [Suspect]
     Indication: THROMBOCYTOSIS
     Dosage: 1 MG, 1X/DAY:QD, ORAL
     Route: 048
     Dates: start: 20090801, end: 20090911
  2. HYDREA [Suspect]
     Indication: POLYCYTHAEMIA VERA
     Dosage: 3000 MG, 1X/DAY:QD, ORAL
     Route: 048
     Dates: start: 20090801, end: 20090911

REACTIONS (4)
  - EPISTAXIS [None]
  - GASTROINTESTINAL HAEMORRHAGE [None]
  - PANCYTOPENIA [None]
  - STEVENS-JOHNSON SYNDROME [None]
